FAERS Safety Report 5452622-7 (Version None)
Quarter: 2007Q3

REPORT INFORMATION
  Report Type: 
  Country: None (occurrence: None)
  Receive Date: 20070914
  Receipt Date: 20070910
  Transmission Date: 20080115
  Serious: Yes (Death, Other)
  Sender: FDA-Public Use
  Company Number: DE-BRISTOL-MYERS SQUIBB COMPANY-13904891

PATIENT

DRUGS (6)
  1. IFOSFAMIDE [Suspect]
  2. ETOPOSIDE [Suspect]
  3. CYCLOPHOSPHAMIDE [Suspect]
  4. CYTARABINE [Suspect]
  5. DEXAMETHASONE 0.5MG TAB [Suspect]
  6. MELPHALAN [Suspect]

REACTIONS (5)
  - ARRHYTHMIA [None]
  - PNEUMONIA [None]
  - PNEUMONITIS [None]
  - SEPSIS [None]
  - TOXIC EPIDERMAL NECROLYSIS [None]
